FAERS Safety Report 6793356-6 (Version None)
Quarter: 2010Q2

REPORT INFORMATION
  Report Type: 
  Country: None (occurrence: None)
  Receive Date: 20100624
  Receipt Date: 20100111
  Transmission Date: 20101027
  Serious: Yes (Death)
  Sender: FDA-Public Use
  Company Number: US-MYLANLABS-2009S1021868

PATIENT
  Age: 94 Year
  Sex: Female

DRUGS (15)
  1. CLOZAPINE [Suspect]
     Indication: AGITATION
     Route: 048
     Dates: end: 20091216
  2. TYLENOL [Concomitant]
     Dates: end: 20091216
  3. ALPRAZOLAM [Concomitant]
     Dates: end: 20091216
  4. AMLODIPINE BESYLATE AND BENAZEPRIL HYDROCHLORIDE [Concomitant]
     Dates: end: 20091216
  5. CARVEDILOL [Concomitant]
     Dates: end: 20091216
  6. CIPRO [Concomitant]
     Dates: end: 20091216
  7. PEPCID [Concomitant]
     Dates: end: 20091216
  8. POLY-IRON /01214501/ [Concomitant]
     Dates: end: 20091216
  9. MULTI-VITAMINS [Concomitant]
     Dates: end: 20091216
  10. MORPHINE [Concomitant]
     Dates: end: 20091216
  11. LORAZEPAM [Concomitant]
     Dates: end: 20091216
  12. LORTADINE [Concomitant]
     Dates: end: 20091216
  13. LEXAPRO [Concomitant]
     Dates: end: 20091216
  14. LEVOTHYROXINE [Concomitant]
     Dates: end: 20091216
  15. LASIX [Concomitant]
     Dates: end: 20091216

REACTIONS (3)
  - ARTERIOSCLEROSIS CORONARY ARTERY [None]
  - CARDIAC FAILURE CONGESTIVE [None]
  - CORONARY ARTERY DISEASE [None]
